FAERS Safety Report 9633301 (Version 2)
Quarter: 2013Q4

REPORT INFORMATION
  Report Type: Spontaneous
  Country: IT (occurrence: IT)
  Receive Date: 20131021
  Receipt Date: 20131213
  Transmission Date: 20140711
  Serious: Yes (Hospitalization)
  Sender: FDA-Public Use
  Company Number: IT-PFIZER INC-2013298540

PATIENT
  Age: 44 Year
  Sex: Female

DRUGS (4)
  1. CAMPTO [Suspect]
     Indication: COLON CANCER
     Dosage: 255 MG, TOTAL DOSE
     Route: 042
     Dates: start: 20131010, end: 20131010
  2. AVASTIN [Concomitant]
  3. TRIMETON [Concomitant]
     Indication: PREMEDICATION
  4. ALOXI [Concomitant]

REACTIONS (2)
  - Dysphonia [Recovering/Resolving]
  - Dyspnoea [Recovering/Resolving]
